FAERS Safety Report 25544990 (Version 2)
Quarter: 2025Q3

REPORT INFORMATION
  Report Type: Spontaneous
  Country: US (occurrence: US)
  Receive Date: 20250711
  Receipt Date: 20250812
  Transmission Date: 20251020
  Serious: No
  Sender: INCYTE
  Company Number: US-EVENT-003300

PATIENT

DRUGS (5)
  1. ZYNYZ [Suspect]
     Active Substance: RETIFANLIMAB-DLWR
     Indication: Anal cancer
     Route: 065
  2. ZYNYZ [Suspect]
     Active Substance: RETIFANLIMAB-DLWR
  3. ZYNYZ [Suspect]
     Active Substance: RETIFANLIMAB-DLWR
  4. CARBOPLATIN [Suspect]
     Active Substance: CARBOPLATIN
     Indication: Anal cancer
     Route: 065
  5. PACLITAXEL [Suspect]
     Active Substance: PACLITAXEL
     Indication: Anal cancer
     Route: 065

REACTIONS (1)
  - Hypoaesthesia oral [Recovered/Resolved]
